FAERS Safety Report 17412042 (Version 1)
Quarter: 2020Q1

REPORT INFORMATION
  Report Type: Spontaneous
  Country: US (occurrence: US)
  Receive Date: 20200213
  Receipt Date: 20200213
  Transmission Date: 20200409
  Serious: No
  Sender: FDA-Public Use
  Company Number: US-009507513-2002USA004717

PATIENT
  Age: 65 Year
  Sex: Male

DRUGS (6)
  1. BELSOMRA [Suspect]
     Active Substance: SUVOREXANT
     Indication: INSOMNIA
     Dosage: ONCE A NIGHT
     Route: 048
  2. BELSOMRA [Suspect]
     Active Substance: SUVOREXANT
     Dosage: ONCE A NIGHT
     Route: 048
     Dates: start: 20200202, end: 202002
  3. ZALEPLON. [Concomitant]
     Active Substance: ZALEPLON
  4. KLONOPIN [Concomitant]
     Active Substance: CLONAZEPAM
  5. ABILIFY [Concomitant]
     Active Substance: ARIPIPRAZOLE
  6. ZOLOFT [Concomitant]
     Active Substance: SERTRALINE HYDROCHLORIDE

REACTIONS (1)
  - Therapeutic product effect incomplete [Not Recovered/Not Resolved]

NARRATIVE: CASE EVENT DATE: 20200202
